FAERS Safety Report 4278252-0 (Version None)
Quarter: 2004Q1

REPORT INFORMATION
  Report Type: 
  Country: None (occurrence: None)
  Receive Date: 20040123
  Receipt Date: 20040113
  Transmission Date: 20041129
  Serious: Yes (Hospitalization)
  Sender: FDA-Public Use
  Company Number: DE-BRISTOL-MYERS SQUIBB COMPANY-12477667

PATIENT
  Age: 45 Year
  Sex: Female
  Weight: 60 kg

DRUGS (6)
  1. TAXOL [Suspect]
     Indication: OVARIAN CANCER
     Route: 042
     Dates: start: 20031209, end: 20031209
  2. CARBOPLATIN [Suspect]
     Indication: OVARIAN CANCER
     Route: 042
     Dates: start: 20031209, end: 20031209
  3. DEXAMETHASONE [Concomitant]
     Indication: PREMEDICATION
     Dates: start: 20031209, end: 20031211
  4. GRANISETRON [Concomitant]
     Indication: PREMEDICATION
     Dates: start: 20031209, end: 20031211
  5. DIMETINDENE [Concomitant]
     Indication: PREMEDICATION
     Dates: start: 20031209
  6. RANITIDINE [Concomitant]
     Indication: PREMEDICATION
     Dates: start: 20031209

REACTIONS (5)
  - ABDOMINAL INFECTION [None]
  - CONSTIPATION [None]
  - ILEUS [None]
  - MUCOSAL INFLAMMATION [None]
  - STOMATITIS [None]
